FAERS Safety Report 12840195 (Version 1)
Quarter: 2016Q4

REPORT INFORMATION
  Report Type: Spontaneous
  Country: US (occurrence: US)
  Receive Date: 20161012
  Receipt Date: 20161012
  Transmission Date: 20170207
  Serious: Yes (Other)
  Sender: FDA-Public Use
  Company Number: US-BAYER-2016-195164

PATIENT
  Age: 60 Year
  Sex: Female

DRUGS (1)
  1. GADAVIST [Suspect]
     Active Substance: GADOBUTROL
     Dosage: 2 ML (1 MMOL/ ML), ONCE

REACTIONS (4)
  - Drug administration error [None]
  - Muscle spasms [None]
  - Pain [None]
  - Incorrect route of drug administration [None]
